FAERS Safety Report 7823075-6 (Version None)
Quarter: 2011Q4

REPORT INFORMATION
  Report Type: 
  Country: None (occurrence: None)
  Receive Date: 20111018
  Receipt Date: 20101108
  Transmission Date: 20120403
  Serious: No
  Sender: FDA-Public Use
  Company Number: US-ASTRAZENECA-2010SE52926

PATIENT
  Age: 29 Year
  Sex: Male

DRUGS (3)
  1. ALBUTEROL [Concomitant]
     Dosage: PRN
  2. SINGULAIR [Concomitant]
  3. SYMBICORT [Suspect]
     Indication: ASTHMA
     Dosage: 320 MCG BID
     Route: 055
     Dates: start: 20100501

REACTIONS (2)
  - DYSPNOEA [None]
  - DRUG DOSE OMISSION [None]
